FAERS Safety Report 7967166-8 (Version None)
Quarter: 2011Q4

REPORT INFORMATION
  Report Type: 
  Country: None (occurrence: None)
  Receive Date: 20111209
  Receipt Date: 20111130
  Transmission Date: 20120403
  Serious: Yes (Other)
  Sender: FDA-Public Use
  Company Number: US-JNJFOC-20111200629

PATIENT
  Sex: Female
  Weight: 68.04 kg

DRUGS (1)
  1. REMICADE [Suspect]
     Indication: CROHN'S DISEASE
     Dosage: EVERY OTHER MONTH
     Route: 042
     Dates: start: 20100601

REACTIONS (3)
  - HIDRADENITIS [None]
  - CROHN'S DISEASE [None]
  - PAIN [None]
